FAERS Safety Report 7198439-7 (Version None)
Quarter: 2010Q4

REPORT INFORMATION
  Report Type: 
  Country: None (occurrence: None)
  Receive Date: 20101227
  Receipt Date: 20101215
  Transmission Date: 20110411
  Serious: Yes (Other)
  Sender: FDA-Public Use
  Company Number: PHHY2010CO82719

PATIENT
  Sex: Male

DRUGS (2)
  1. LAMISIL [Suspect]
     Indication: SKIN EXFOLIATION
     Dosage: 250 MG
     Route: 048
  2. LAMISIL [Suspect]
     Indication: TINEA PEDIS

REACTIONS (15)
  - DISCOMFORT [None]
  - DRUG HYPERSENSITIVITY [None]
  - DRUG TOXICITY [None]
  - DYSPNOEA [None]
  - HYPERHIDROSIS [None]
  - INFLAMMATION [None]
  - PAIN [None]
  - PRURITUS [None]
  - RESPIRATORY DISORDER [None]
  - SKIN DISORDER [None]
  - SKIN EXFOLIATION [None]
  - STRESS [None]
  - THROAT IRRITATION [None]
  - UPPER RESPIRATORY TRACT INFLAMMATION [None]
  - URTICARIA [None]
